FAERS Safety Report 18153753 (Version 1)
Quarter: 2020Q3

REPORT INFORMATION
  Report Type: Report from Study
  Country: EG (occurrence: EG)
  Receive Date: 20200816
  Receipt Date: 20200816
  Transmission Date: 20201103
  Serious: Yes (Death)
  Sender: FDA-Public Use
  Company Number: NVSC2020EG224857

PATIENT
  Age: 56 Year
  Sex: Male

DRUGS (1)
  1. ENTRESTO [Suspect]
     Active Substance: SACUBITRIL\VALSARTAN
     Indication: CARDIAC FAILURE
     Dosage: 50 MG, QD
     Route: 065
     Dates: start: 20190401, end: 20200625

REACTIONS (7)
  - Pain [Recovered/Resolved]
  - Chest pain [Recovered/Resolved]
  - Cardiac failure [Fatal]
  - Irregular breathing [Recovered/Resolved]
  - Chest pain [Unknown]
  - Irregular breathing [Unknown]
  - Pain [Unknown]

NARRATIVE: CASE EVENT DATE: 20200614
